FAERS Safety Report 6633114-6 (Version None)
Quarter: 2010Q1

REPORT INFORMATION
  Report Type: 
  Country: None (occurrence: None)
  Receive Date: 20100312
  Receipt Date: 20100302
  Transmission Date: 20100710
  Serious: Yes (Other)
  Sender: FDA-Public Use
  Company Number: PHHY2010JP03699

PATIENT
  Sex: Male

DRUGS (10)
  1. RASILEZ [Suspect]
     Indication: HYPERTENSION
     Dosage: 150 MG DAILY
     Route: 048
     Dates: start: 20100115, end: 20100120
  2. NORVASC [Concomitant]
     Dosage: 5 MG DAILY
     Dates: start: 20090119
  3. NORVASC [Concomitant]
     Dosage: 10 MG DAILY
     Dates: start: 20090831
  4. NORVASC [Concomitant]
     Dosage: 5 MG DAILY
     Dates: start: 20090907
  5. NORVASC [Concomitant]
     Dosage: 10 MG DAILY
     Dates: start: 20100115
  6. TENORMIN [Concomitant]
     Dosage: 25 MG DAILY
     Dates: start: 20090119, end: 20090831
  7. DIOVAN [Concomitant]
     Dosage: 80 MG DAILY
     Dates: start: 20090119, end: 20090705
  8. CARDENALIN [Concomitant]
     Dosage: 1 MG DAILY
     Dates: start: 20090119, end: 20090706
  9. CO-DIOVAN [Concomitant]
     Dosage: 1 DF
     Dates: start: 20090706
  10. CALVAN [Concomitant]
     Dosage: 200 MG, UNK
     Dates: start: 20090907, end: 20100115

REACTIONS (3)
  - ATRIAL FIBRILLATION [None]
  - PALPITATIONS [None]
  - TACHYCARDIA [None]
